FAERS Safety Report 9882591 (Version 3)
Quarter: 2014Q1

REPORT INFORMATION
  Report Type: Report from Study
  Country: ES (occurrence: ES)
  Receive Date: 20140207
  Receipt Date: 20140225
  Transmission Date: 20141002
  Serious: Yes (Hospitalization, Disabling)
  Sender: FDA-Public Use
  Company Number: ES-INCYTE CORPORATION-2011IN000265

PATIENT
  Age: 59 Year
  Sex: Male
  Weight: 74.6 kg

DRUGS (10)
  1. INCB018424 [Suspect]
     Indication: MYELOFIBROSIS
     Dosage: 5 MG, BID
     Route: 048
     Dates: start: 20110912, end: 20111009
  2. INCB018424 [Suspect]
     Dosage: 20 MG, BID
     Route: 048
     Dates: start: 20111010, end: 20111014
  3. INCB018424 [Suspect]
     Dosage: 10 MG, BID
     Route: 048
     Dates: end: 20111130
  4. INCB018424 [Suspect]
     Dosage: 10 MG, QD
     Route: 048
     Dates: start: 20111207, end: 20120109
  5. INCB018424 [Suspect]
     Dosage: 10 MG, BID
     Route: 048
     Dates: start: 20120110
  6. ADIRO [Concomitant]
     Dosage: UNK
     Dates: start: 2008
  7. PERIACTIN [Concomitant]
     Dosage: UNK
     Dates: start: 20091116
  8. ASPIRIN [Concomitant]
     Dosage: UNK
  9. ASPIRIN [Concomitant]
     Dosage: UNK
     Dates: start: 20111207
  10. LORAZEPAM [Concomitant]
     Dosage: UNK
     Dates: start: 200901

REACTIONS (3)
  - Post procedural haemorrhage [Recovered/Resolved]
  - Dental necrosis [Recovered/Resolved with Sequelae]
  - Periodontitis [Recovered/Resolved with Sequelae]
